FAERS Safety Report 6919209-8 (Version None)
Quarter: 2010Q3

REPORT INFORMATION
  Report Type: 
  Country: None (occurrence: None)
  Receive Date: 20100728
  Receipt Date: 20100708
  Transmission Date: 20110219
  Serious: Yes (Hospitalization)
  Sender: FDA-Public Use
  Company Number: 2010-00488

PATIENT
  Age: 61 Year
  Sex: Female
  Weight: 108.8633 kg

DRUGS (4)
  1. ZICAM ALLERGY RELIEF GEL SWABS [Suspect]
     Indication: SEASONAL ALLERGY
     Dosage: QID FOR 3 DAYS
     Dates: start: 20100502, end: 20100505
  2. ZANAFLEX [Concomitant]
  3. GABAPENTIN [Concomitant]
  4. KLONOPIN [Concomitant]

REACTIONS (1)
  - PNEUMONIA [None]
